FAERS Safety Report 8962527 (Version 3)
Quarter: 2014Q1

REPORT INFORMATION
  Report Type: Spontaneous
  Country: US (occurrence: US)
  Receive Date: 20121213
  Receipt Date: 20140328
  Transmission Date: 20141002
  Serious: No
  Sender: FDA-Public Use
  Company Number: US-009507513-1212USA002775

PATIENT
  Sex: Male

DRUGS (5)
  1. PROPECIA [Suspect]
     Indication: ANDROGENETIC ALOPECIA
     Dosage: 1 MG, UNK
     Route: 048
     Dates: start: 199905, end: 200606
  2. ZYBAN [Concomitant]
     Dosage: UNK
     Dates: start: 199906, end: 200002
  3. PRINIVIL [Concomitant]
     Dosage: UNK
     Route: 048
     Dates: start: 199905, end: 200709
  4. LIPITOR [Concomitant]
     Indication: BLOOD CHOLESTEROL INCREASED
     Dosage: UNK
     Dates: start: 199905, end: 200602
  5. COLESTID [Concomitant]
     Indication: BLOOD CHOLESTEROL INCREASED
     Dosage: UNK
     Dates: start: 199906, end: 200209

REACTIONS (2)
  - Cognitive disorder [Not Recovered/Not Resolved]
  - Sexual dysfunction [Not Recovered/Not Resolved]
